FAERS Safety Report 10310506 (Version 1)
Quarter: 2014Q3

REPORT INFORMATION
  Report Type: Spontaneous
  Country: US (occurrence: None)
  Receive Date: 20140716
  Receipt Date: 20140716
  Transmission Date: 20150326
  Serious: Yes (Hospitalization)
  Sender: FDA-Public Use
  Company Number: None

PATIENT
  Age: 34 Year
  Sex: Female
  Weight: 66.7 kg

DRUGS (2)
  1. CARBOPLATIN. [Suspect]
     Active Substance: CARBOPLATIN
     Dosage: TOTAL DOSE ADMINISTERED 760 MG
  2. TAXOL [Suspect]
     Active Substance: PACLITAXEL
     Dosage: TOTAL DOSE ADMINISTERED 300 MG

REACTIONS (7)
  - Pyrexia [None]
  - Atelectasis [None]
  - Blood triglycerides increased [None]
  - Hypocalcaemia [None]
  - Hyponatraemia [None]
  - Pancreatitis acute [None]
  - Lung infiltration [None]

NARRATIVE: CASE EVENT DATE: 20140706
